FAERS Safety Report 7955077-3 (Version None)
Quarter: 2011Q4

REPORT INFORMATION
  Report Type: 
  Country: None (occurrence: None)
  Receive Date: 20111202
  Receipt Date: 20111130
  Transmission Date: 20120403
  Serious: Yes (Hospitalization)
  Sender: FDA-Public Use
  Company Number: FR-ROCHE-1018030

PATIENT
  Age: 75 Year
  Sex: Female

DRUGS (5)
  1. AVASTIN [Suspect]
     Indication: PRODUCT USED FOR UNKNOWN INDICATION
     Route: 042
     Dates: start: 20110905, end: 20110905
  2. ONDANSETRON HYDROCHLORIDE [Concomitant]
  3. PACLITAXEL [Suspect]
     Indication: PRODUCT USED FOR UNKNOWN INDICATION
     Route: 042
     Dates: start: 20110905, end: 20110905
  4. RANITIDINE [Concomitant]
  5. METHYLPREDNISOLONE [Concomitant]

REACTIONS (2)
  - CYTOLYTIC HEPATITIS [None]
  - JAUNDICE [None]
